FAERS Safety Report 7420149-9 (Version None)
Quarter: 2011Q2

REPORT INFORMATION
  Report Type: 
  Country: None (occurrence: None)
  Receive Date: 20110413
  Receipt Date: 20110413
  Transmission Date: 20111010
  Serious: Yes (Disabling, Other)
  Sender: FDA-Public Use
  Company Number: None

PATIENT
  Sex: Female
  Weight: 72.5755 kg

DRUGS (1)
  1. FOSAMAX [Suspect]
     Indication: OSTEOPOROSIS
     Dosage: 1 TAB 70MG 1 WEEKLY
     Dates: start: 20020101, end: 20060101

REACTIONS (5)
  - HIATUS HERNIA [None]
  - ULCER [None]
  - DYSPEPSIA [None]
  - GASTROOESOPHAGEAL SPHINCTER INSUFFICIENCY [None]
  - CHEST PAIN [None]
